FAERS Safety Report 16106336 (Version 1)
Quarter: 2019Q2

REPORT INFORMATION
  Report Type: Spontaneous
  Country: US (occurrence: US)
  Receive Date: 20190321
  Receipt Date: 20190321
  Transmission Date: 20190711
  Serious: Yes (Disabling)
  Sender: FDA-Public Use
  Company Number: None

PATIENT
  Age: 39 Year
  Sex: Female
  Weight: 85.5 kg

DRUGS (1)
  1. OCREVUS [Suspect]
     Active Substance: OCRELIZUMAB
     Indication: RELAPSING-REMITTING MULTIPLE SCLEROSIS
     Dates: start: 20181115

REACTIONS (7)
  - Limb discomfort [None]
  - Exposure to mould [None]
  - Multiple sclerosis relapse [None]
  - Hypoaesthesia [None]
  - Gait disturbance [None]
  - Photophobia [None]
  - Infusion related reaction [None]

NARRATIVE: CASE EVENT DATE: 20181116
